FAERS Safety Report 10753761 (Version 1)
Quarter: 2015Q1

REPORT INFORMATION
  Report Type: Spontaneous
  Country: US (occurrence: US)
  Receive Date: 20150201
  Receipt Date: 20150201
  Transmission Date: 20150721
  Serious: Yes (Other)
  Sender: FDA-Public Use
  Company Number: US-MYLANLABS-2015M1002314

PATIENT

DRUGS (4)
  1. RASAGILINE [Concomitant]
     Active Substance: RASAGILINE
     Indication: PARKINSON^S DISEASE
     Route: 065
  2. CARBIDOPA/LEVODOPA [Suspect]
     Active Substance: CARBIDOPA\LEVODOPA
     Indication: PARKINSON^S DISEASE
     Dosage: 2.5 LEVODOPA/CARBIDOPA 100/25 IMMEDIATE RELEASE PILLS EVERY 3H GIVEN 5 TIMES PER DAY
     Route: 065
  3. CARBIDOPA/LEVODOPA [Suspect]
     Active Substance: CARBIDOPA\LEVODOPA
     Dosage: ^POPPED^ LOTS OF EXTRA DOSES ON A DAILY BASIS
     Route: 065
  4. APOMORPHINE [Concomitant]
     Active Substance: APOMORPHINE
     Dosage: UP TO FIVE TIMES A DAY, AS NEEDED
     Route: 065

REACTIONS (2)
  - Drug abuse [Recovered/Resolved]
  - Dopamine dysregulation syndrome [Recovered/Resolved]
